FAERS Safety Report 7343161-7 (Version None)
Quarter: 2011Q1

REPORT INFORMATION
  Report Type: 
  Country: None (occurrence: None)
  Receive Date: 20110310
  Receipt Date: 20110225
  Transmission Date: 20110831
  Serious: Yes (Other)
  Sender: FDA-Public Use
  Company Number: PHHY2011HU17293

PATIENT
  Sex: Female
  Weight: 2.8 kg

DRUGS (1)
  1. FEMARA [Suspect]

REACTIONS (1)
  - RENAL DISORDER [None]
